FAERS Safety Report 6889428-8 (Version None)
Quarter: 2010Q3

REPORT INFORMATION
  Report Type: 
  Country: None (occurrence: None)
  Receive Date: 20100730
  Receipt Date: 20080215
  Transmission Date: 20110219
  Serious: No
  Sender: FDA-Public Use
  Company Number: US-PFIZER INC-2004097983

PATIENT
  Sex: Female
  Weight: 41.73 kg

DRUGS (5)
  1. LIPITOR [Suspect]
     Indication: BLOOD CHOLESTEROL INCREASED
     Dates: start: 20031010
  2. LISINOPRIL [Suspect]
  3. NAPROXEN [Suspect]
  4. ACTONEL [Suspect]
     Indication: ARTHRITIS
     Dates: start: 20021029
  5. VITAMINS [Concomitant]

REACTIONS (7)
  - ASTHENIA [None]
  - BLOOD POTASSIUM INCREASED [None]
  - DIARRHOEA [None]
  - FAECES DISCOLOURED [None]
  - MUSCULAR WEAKNESS [None]
  - PAIN [None]
  - WEIGHT DECREASED [None]
